FAERS Safety Report 4701690-6 (Version None)
Quarter: 2005Q2

REPORT INFORMATION
  Report Type: 
  Country: None (occurrence: None)
  Receive Date: 20050628
  Receipt Date: 20050524
  Transmission Date: 20051028
  Serious: Yes (Hospitalization)
  Sender: FDA-Public Use
  Company Number: PHBS2005JP07444

PATIENT
  Age: 63 Year
  Sex: Male

DRUGS (5)
  1. DIOVAN [Suspect]
     Dosage: 80 MG, QD
     Route: 048
     Dates: start: 20040205
  2. ALCOHOL [Suspect]
  3. TENORMIN [Concomitant]
     Indication: HYPERTENSION
     Route: 048
     Dates: start: 20040914
  4. CALBLOCK [Concomitant]
     Indication: HYPERTENSION
     Route: 048
     Dates: start: 20050315
  5. WARFARIN [Concomitant]
     Dosage: UNK, UNK
     Route: 048
     Dates: start: 20040914

REACTIONS (1)
  - LOSS OF CONSCIOUSNESS [None]
